FAERS Safety Report 7451148-9 (Version None)
Quarter: 2011Q2

REPORT INFORMATION
  Report Type: 
  Country: None (occurrence: None)
  Receive Date: 20110502
  Receipt Date: 20110419
  Transmission Date: 20111010
  Serious: Yes (Other)
  Sender: FDA-Public Use
  Company Number: PHHY2011US23751

PATIENT
  Sex: Female
  Weight: 81.633 kg

DRUGS (4)
  1. DIOVAN HCT [Suspect]
     Route: 048
  2. THYROID THERAPY [Concomitant]
  3. NEXIUM [Concomitant]
  4. DIOVAN [Suspect]
     Dosage: 160 MG, QD

REACTIONS (2)
  - DIZZINESS [None]
  - LOSS OF CONSCIOUSNESS [None]
